FAERS Safety Report 15728397 (Version 1)
Quarter: 2018Q4

REPORT INFORMATION
  Report Type: Spontaneous
  Country: CA (occurrence: CA)
  Receive Date: 20181217
  Receipt Date: 20181217
  Transmission Date: 20190205
  Serious: Yes (Death, Hospitalization, Congenital Anomaly, Other)
  Sender: FDA-Public Use
  Company Number: CA-APOTEX-2018AP025333

PATIENT

DRUGS (1)
  1. PAXIL [Suspect]
     Active Substance: PAROXETINE HYDROCHLORIDE
     Indication: PRODUCT USED FOR UNKNOWN INDICATION
     Dosage: UNK MG, UNK
     Route: 064

REACTIONS (10)
  - Joint dislocation [Unknown]
  - Hypoglycaemia [Unknown]
  - Developmental delay [Unknown]
  - Stridor [Unknown]
  - Hypoxic-ischaemic encephalopathy [Unknown]
  - Congenital visual acuity reduced [Unknown]
  - Foetal exposure during pregnancy [Unknown]
  - Cardio-respiratory arrest [Fatal]
  - Brain injury [Unknown]
  - Dyskinesia [Unknown]

NARRATIVE: CASE EVENT DATE: 20060702
